FAERS Safety Report 15752335 (Version 1)
Quarter: 2018Q4

REPORT INFORMATION
  Report Type: Spontaneous
  Country: US (occurrence: US)
  Receive Date: 20181221
  Receipt Date: 20181221
  Transmission Date: 20190205
  Serious: Yes (Death)
  Sender: FDA-Public Use
  Company Number: US-ALLERGAN-1858904US

PATIENT
  Age: 29 Year
  Sex: Female

DRUGS (2)
  1. NORFLUOXETINE [Suspect]
     Active Substance: NORFLUOXETINE
     Indication: MAJOR DEPRESSION
     Dosage: UNK
     Route: 065
  2. FLUOXETINE HCL UNK [Suspect]
     Active Substance: FLUOXETINE HYDROCHLORIDE
     Indication: MAJOR DEPRESSION
     Dosage: UNK
     Route: 065

REACTIONS (3)
  - Cardiomegaly [Fatal]
  - Obesity [Fatal]
  - Off label use [Unknown]
